FAERS Safety Report 19905118 (Version 2)
Quarter: 2021Q4

REPORT INFORMATION
  Report Type: Other
  Country: US (occurrence: US)
  Receive Date: 20211001
  Receipt Date: 20211206
  Transmission Date: 20220303
  Serious: Yes (Other)
  Sender: FDA-Public Use
  Company Number: US-INTERCEPT-PM2021002858

PATIENT
  Age: 32 Year
  Sex: Female

DRUGS (1)
  1. OCALIVA [Suspect]
     Active Substance: OBETICHOLIC ACID
     Indication: Primary biliary cholangitis
     Dosage: 5 MILLIGRAM, QW
     Route: 048
     Dates: start: 20210412, end: 2021

REACTIONS (1)
  - Gastric varices haemorrhage [Recovered/Resolved]

NARRATIVE: CASE EVENT DATE: 20210601
